FAERS Safety Report 8485773-3 (Version None)
Quarter: 2012Q3

REPORT INFORMATION
  Report Type: 
  Country: None (occurrence: None)
  Receive Date: 20120703
  Receipt Date: 20120628
  Transmission Date: 20120928
  Serious: Yes (Hospitalization)
  Sender: FDA-Public Use
  Company Number: US-PFIZER INC-2012156410

PATIENT
  Sex: Male
  Weight: 84.354 kg

DRUGS (3)
  1. CHANTIX [Suspect]
     Indication: SMOKING CESSATION THERAPY
     Dosage: 0.5 MG, 1X/DAY
     Route: 048
     Dates: start: 20120607
  2. CHANTIX [Suspect]
     Dosage: 1 MG, 2X/DAY
     Route: 048
     Dates: end: 20120601
  3. PRIMIDONE [Concomitant]
     Indication: CONVULSION
     Dosage: UNK

REACTIONS (6)
  - DRUG INTOLERANCE [None]
  - LOWER LIMB FRACTURE [None]
  - FEELING ABNORMAL [None]
  - ANGER [None]
  - DEPRESSED MOOD [None]
  - FALL [None]
